FAERS Safety Report 11140007 (Version 3)
Quarter: 2015Q3

REPORT INFORMATION
  Report Type: Report from Study
  Country: US (occurrence: US)
  Receive Date: 20150527
  Receipt Date: 20150804
  Transmission Date: 20151125
  Serious: Yes (Other)
  Sender: FDA-Public Use
  Company Number: US-SA-2015SA022456

PATIENT
  Age: 46 Year
  Sex: Female

DRUGS (2)
  1. AUBAGIO [Suspect]
     Active Substance: TERIFLUNOMIDE
     Indication: MULTIPLE SCLEROSIS
     Route: 048
     Dates: start: 20150425
  2. AUBAGIO [Suspect]
     Active Substance: TERIFLUNOMIDE
     Indication: MULTIPLE SCLEROSIS
     Route: 048
     Dates: start: 20150203, end: 20150409

REACTIONS (5)
  - Haemorrhage [Unknown]
  - Abdominal discomfort [Recovered/Resolved]
  - Trichorrhexis [Unknown]
  - Alopecia [Unknown]
  - Alopecia [Unknown]

NARRATIVE: CASE EVENT DATE: 2015
